FAERS Safety Report 7477859-7 (Version None)
Quarter: 2011Q2

REPORT INFORMATION
  Report Type: 
  Country: None (occurrence: None)
  Receive Date: 20110513
  Receipt Date: 20110407
  Transmission Date: 20111010
  Serious: Yes (Other)
  Sender: FDA-Public Use
  Company Number: US-BAYER-2011-013492

PATIENT
  Age: 43 Year
  Sex: Female
  Weight: 72.562 kg

DRUGS (2)
  1. YAZ [Suspect]
     Indication: MIGRAINE
  2. YAZ [Suspect]
     Indication: ORAL CONTRACEPTION

REACTIONS (9)
  - STRESS [None]
  - PLEURISY [None]
  - DYSPNOEA [None]
  - PAIN [None]
  - FEAR [None]
  - INSOMNIA [None]
  - EMOTIONAL DISTRESS [None]
  - ANXIETY [None]
  - PULMONARY EMBOLISM [None]
